FAERS Safety Report 13597795 (Version 1)
Quarter: 2017Q2

REPORT INFORMATION
  Report Type: Spontaneous
  Country: ES (occurrence: ES)
  Receive Date: 20170531
  Receipt Date: 20170531
  Transmission Date: 20170830
  Serious: Yes (Hospitalization)
  Sender: FDA-Public Use
  Company Number: ES-JNJFOC-20170523793

PATIENT
  Age: 55 Year
  Sex: Female
  Weight: 74.03 kg

DRUGS (3)
  1. PARACETAMOL [Suspect]
     Active Substance: ACETAMINOPHEN
     Route: 048
  2. PLACEBO [Suspect]
     Active Substance: UNSPECIFIED INGREDIENT
     Indication: OSTEOARTHRITIS
     Dosage: 2.5 MG/ML OR 5 MG/ML; 1 ML IN PRE-FILLED GLASS SYRINGE AT 3 DOSES AT 8-WEEK INTERVALS
     Route: 058
     Dates: start: 20161219, end: 20170417
  3. PARACETAMOL [Suspect]
     Active Substance: ACETAMINOPHEN
     Indication: ARTHRALGIA
     Dosage: 1 G AS NEEDED (OCCASIONALLY ONE OR TWO PER DAY)
     Route: 048
     Dates: start: 20161219, end: 20170424

REACTIONS (2)
  - Hepatitis toxic [Recovering/Resolving]
  - Cholecystitis [Recovering/Resolving]

NARRATIVE: CASE EVENT DATE: 20170424
